FAERS Safety Report 10563193 (Version 1)
Quarter: 2014Q4

REPORT INFORMATION
  Report Type: Spontaneous
  Country: US (occurrence: None)
  Receive Date: 20141103
  Receipt Date: 20141103
  Transmission Date: 20150529
  Serious: No
  Sender: FDA-Public Use
  Company Number: None

PATIENT
  Age: 53 Year
  Sex: Female
  Weight: 86.18 kg

DRUGS (1)
  1. BELVIQ [Suspect]
     Active Substance: LORCASERIN HYDROCHLORIDE
     Indication: WEIGHT DECREASED
     Route: 048
     Dates: start: 20140823, end: 20140912

REACTIONS (7)
  - Balance disorder [None]
  - Paraesthesia [None]
  - Somnolence [None]
  - Feeling abnormal [None]
  - Speech disorder [None]
  - Weight increased [None]
  - Memory impairment [None]

NARRATIVE: CASE EVENT DATE: 20140908
